FAERS Safety Report 9340904 (Version 1)
Quarter: 2013Q2

REPORT INFORMATION
  Report Type: Spontaneous
  Country: IL (occurrence: IL)
  Receive Date: 20130610
  Receipt Date: 20130610
  Transmission Date: 20140414
  Serious: Yes (Other)
  Sender: FDA-Public Use
  Company Number: IL-ASTRAZENECA-2013SE39954

PATIENT
  Age: 54 Year
  Sex: 0

DRUGS (1)
  1. CAPRELSA [Suspect]
     Indication: THYROID CANCER METASTATIC
     Route: 048
     Dates: start: 20130130

REACTIONS (1)
  - Polycythaemia vera [Unknown]
